FAERS Safety Report 6887425-X (Version None)
Quarter: 2010Q3

REPORT INFORMATION
  Report Type: 
  Country: None (occurrence: None)
  Receive Date: 20100730
  Receipt Date: 20100506
  Transmission Date: 20110219
  Serious: No
  Sender: FDA-Public Use
  Company Number: A0858545A

PATIENT
  Age: 62 Year
  Sex: Female

DRUGS (6)
  1. SUMATRIPTAN SUCCINATE [Suspect]
     Indication: MIGRAINE
     Dosage: 100MG AS REQUIRED
     Route: 048
     Dates: start: 20090101
  2. TOPAMAX [Concomitant]
  3. ESTRATEST [Concomitant]
  4. PROMETRIUM [Concomitant]
  5. M.V.I. [Concomitant]
  6. BONIVA [Concomitant]

REACTIONS (1)
  - DRUG INEFFECTIVE [None]
